FAERS Safety Report 7519797-7 (Version None)
Quarter: 2011Q2

REPORT INFORMATION
  Report Type: 
  Country: None (occurrence: None)
  Receive Date: 20110602
  Receipt Date: 20110523
  Transmission Date: 20111010
  Serious: Yes (Death)
  Sender: FDA-Public Use
  Company Number: US-BAXTER-2011BH016786

PATIENT
  Sex: Female

DRUGS (2)
  1. DIANEAL [Suspect]
     Indication: PERITONEAL DIALYSIS
     Route: 033
     Dates: start: 20101001, end: 20110522
  2. DIANEAL [Suspect]
     Route: 033
     Dates: start: 20101001, end: 20110522

REACTIONS (2)
  - CARDIAC DISORDER [None]
  - LIVER DISORDER [None]
